FAERS Safety Report 9652711 (Version 1)
Quarter: 2013Q4

REPORT INFORMATION
  Report Type: Spontaneous
  Country: IT (occurrence: IT)
  Receive Date: 20131029
  Receipt Date: 20131029
  Transmission Date: 20140711
  Serious: Yes (Other)
  Sender: FDA-Public Use
  Company Number: PHHY2013IT118648

PATIENT
  Age: 81 Year
  Sex: Male

DRUGS (5)
  1. FUROSEMIDE [Suspect]
     Dates: start: 20130101, end: 20130903
  2. POTASSIUM CANRENOATE [Suspect]
     Dates: start: 20130101, end: 20130903
  3. VERAPAMIL [Suspect]
     Dates: start: 20130101, end: 20130903
  4. RAMIPRIL [Suspect]
     Dates: start: 20130101, end: 20130903
  5. FINASTERIDE [Concomitant]

REACTIONS (1)
  - Syncope [Recovering/Resolving]
